FAERS Safety Report 7342792-8 (Version None)
Quarter: 2011Q1

REPORT INFORMATION
  Report Type: 
  Country: None (occurrence: None)
  Receive Date: 20110228
  Receipt Date: 20110216
  Transmission Date: 20110831
  Serious: Yes (Other)
  Sender: FDA-Public Use
  Company Number: FR-ACCORD-008177

PATIENT
  Sex: Male

DRUGS (1)
  1. MITOMYCIN [Suspect]
     Indication: PRODUCT USED FOR UNKNOWN INDICATION
     Dosage: INTRAVESICAL
     Route: 043

REACTIONS (3)
  - BLADDER NECROSIS [None]
  - SURGICAL FAILURE [None]
  - OFF LABEL USE [None]
